FAERS Safety Report 18153169 (Version 1)
Quarter: 2020Q3

REPORT INFORMATION
  Report Type: Spontaneous
  Country: US (occurrence: US)
  Receive Date: 20200815
  Receipt Date: 20200815
  Transmission Date: 20201103
  Serious: No
  Sender: FDA-Public Use
  Company Number: US-SHIRE-US202026202

PATIENT
  Sex: Male

DRUGS (3)
  1. FIRAZYR [Suspect]
     Active Substance: ICATIBANT ACETATE
     Indication: HYPOTHYROIDISM
     Dosage: 30MG/3ML, AS REQ^D
     Route: 058
     Dates: start: 20170321
  2. FLUTICASONE. [Concomitant]
     Active Substance: FLUTICASONE
     Indication: PRODUCT USED FOR UNKNOWN INDICATION
  3. FIRAZYR [Suspect]
     Active Substance: ICATIBANT ACETATE
     Indication: HYPOTHYROIDISM
     Dosage: 30MG/3ML, AS REQ^D
     Route: 058
     Dates: start: 20170321

REACTIONS (2)
  - Hereditary angioedema [Not Recovered/Not Resolved]
  - Stress [Not Recovered/Not Resolved]
